FAERS Safety Report 18415743 (Version 4)
Quarter: 2022Q2

REPORT INFORMATION
  Report Type: Spontaneous
  Country: US (occurrence: US)
  Receive Date: 20201022
  Receipt Date: 20220405
  Transmission Date: 20220721
  Serious: Yes (Other)
  Sender: FDA-Public Use
  Company Number: US-PFIZER INC-2020408416

PATIENT
  Age: 61 Year
  Sex: Female

DRUGS (3)
  1. XELJANZ XR [Suspect]
     Active Substance: TOFACITINIB CITRATE
     Dosage: 11 MG
     Dates: start: 20200714
  2. XELJANZ XR [Suspect]
     Active Substance: TOFACITINIB CITRATE
     Dosage: 11 MG
     Dates: start: 20200902
  3. XELJANZ XR [Suspect]
     Active Substance: TOFACITINIB CITRATE
     Dosage: 11 MG
     Dates: start: 20210324

REACTIONS (10)
  - Diverticulitis [Unknown]
  - Gastric ulcer [Unknown]
  - Gastric perforation [Unknown]
  - Eye infection staphylococcal [Unknown]
  - Abdominal distension [Unknown]
  - Rhinorrhoea [Unknown]
  - COVID-19 [Unknown]
  - Seasonal allergy [Unknown]
  - Nasal congestion [Unknown]
  - Sinus disorder [Unknown]

NARRATIVE: CASE EVENT DATE: 20200801
